FAERS Safety Report 7209198-3 (Version None)
Quarter: 2011Q1

REPORT INFORMATION
  Report Type: 
  Country: None (occurrence: None)
  Receive Date: 20110104
  Receipt Date: 20101214
  Transmission Date: 20110831
  Serious: Yes (Death, Hospitalization)
  Sender: FDA-Public Use
  Company Number: A0774405A

PATIENT
  Age: 51 Year
  Sex: Female
  Weight: 145.5 kg

DRUGS (6)
  1. HYDROCHLOROTHIAZIDE [Concomitant]
  2. AVANDAMET [Suspect]
     Route: 048
     Dates: start: 20030101, end: 20070107
  3. ZESTRIL [Concomitant]
  4. AVANDIA [Suspect]
     Dosage: 2MG TWICE PER DAY
     Route: 048
     Dates: start: 20020101, end: 20061001
  5. TEVETEN [Concomitant]
  6. METFORMIN [Concomitant]

REACTIONS (5)
  - CARDIAC ARREST [None]
  - CEREBROVASCULAR ACCIDENT [None]
  - ARTERIOSCLEROSIS [None]
  - MYOCARDIAL INFARCTION [None]
  - CARDIAC FAILURE CONGESTIVE [None]
